FAERS Safety Report 9840309 (Version 1)
Quarter: 2014Q1

REPORT INFORMATION
  Report Type: Report from Study
  Country: US (occurrence: US)
  Receive Date: 20140124
  Receipt Date: 20140124
  Transmission Date: 20141002
  Serious: Yes (Death)
  Sender: FDA-Public Use
  Company Number: US-ROCHE-1335868

PATIENT
  Sex: Female
  Weight: 90.8 kg

DRUGS (9)
  1. AVASTIN [Suspect]
     Indication: UTERINE CANCER
     Dosage: 1363 MG
     Route: 042
     Dates: start: 20101101, end: 20110126
  2. AVASTIN [Suspect]
     Indication: ENDOMETRIAL CANCER
  3. DECADRON [Concomitant]
     Dosage: START DATE : 01/NOV/2010
     Route: 042
  4. ALOXI [Concomitant]
     Dosage: START DATE : 01/NOV/2010
     Route: 042
  5. GEMZAR [Concomitant]
     Dosage: START DATE: 01-NOV-2010.
     Route: 042
  6. GEMZAR [Concomitant]
     Dosage: START DATE ; 16/DEC/2010
     Route: 042
  7. CARBOPLATIN [Concomitant]
     Dosage: AUC 4   START DATE: 01/NOV/2010
     Route: 042
  8. CARBOPLATIN [Concomitant]
     Dosage: AUC 3.  START DATE: 16/DEC/2010
     Route: 042
  9. CARBOPLATIN [Concomitant]
     Dosage: AUC 3.  START DATE: 26/JAN/2011
     Route: 042

REACTIONS (6)
  - Papillary serous endometrial carcinoma [Fatal]
  - Nausea [Unknown]
  - Vomiting [Unknown]
  - Fatigue [Unknown]
  - Pain [Unknown]
  - Off label use [Unknown]
